FAERS Safety Report 8812091 (Version 4)
Quarter: 2013Q3

REPORT INFORMATION
  Report Type: Report from Study
  Country: JP (occurrence: JP)
  Receive Date: 20120927
  Receipt Date: 20130822
  Transmission Date: 20140515
  Serious: Yes (Hospitalization, Other)
  Sender: FDA-Public Use
  Company Number: JP-JNJFOC-20120910862

PATIENT
  Age: 47 Year
  Sex: Male
  Weight: 72 kg

DRUGS (30)
  1. OXAROL [Concomitant]
     Indication: PSORIASIS
     Route: 061
  2. AZUNOL [Concomitant]
     Indication: PSORIASIS
     Route: 061
     Dates: end: 20111128
  3. OLMETEC [Concomitant]
     Route: 048
  4. NORVASC [Concomitant]
     Route: 048
     Dates: end: 20120107
  5. LIPITOR [Concomitant]
     Route: 048
  6. CORTRIL [Concomitant]
     Route: 048
  7. THYRADIN S [Concomitant]
     Route: 048
  8. EURAX [Concomitant]
     Indication: PSORIASIS
     Route: 061
     Dates: end: 20111128
  9. METHADERM [Concomitant]
     Indication: PSORIASIS
     Route: 061
  10. ALESION [Concomitant]
     Indication: PSORIASIS
     Route: 048
     Dates: start: 20110822, end: 20111128
  11. PYDOXAL [Concomitant]
     Route: 048
     Dates: start: 20110926, end: 20111215
  12. PYDOXAL [Concomitant]
     Route: 048
     Dates: start: 20110729
  13. EURAX [Concomitant]
     Indication: PSORIASIS
     Route: 061
     Dates: end: 20111128
  14. EBASTEL [Concomitant]
     Indication: PSORIASIS
     Route: 048
     Dates: start: 20110922, end: 20111128
  15. STELARA [Suspect]
     Indication: PSORIASIS
     Route: 058
     Dates: start: 20130326, end: 20130326
  16. STELARA [Suspect]
     Indication: PSORIASIS
     Route: 058
     Dates: start: 20130104, end: 20130104
  17. STELARA [Suspect]
     Indication: PSORIASIS
     Route: 058
     Dates: start: 20120925, end: 20120925
  18. STELARA [Suspect]
     Indication: PSORIASIS
     Route: 058
     Dates: start: 20110520, end: 20110520
  19. STELARA [Suspect]
     Indication: PSORIASIS
     Route: 058
     Dates: start: 20120313, end: 20120313
  20. STELARA [Suspect]
     Indication: PSORIASIS
     Route: 058
     Dates: start: 20110822, end: 20110822
  21. STELARA [Suspect]
     Indication: PSORIASIS
     Route: 058
     Dates: start: 20130620
  22. STELARA [Suspect]
     Indication: PSORIASIS
     Route: 058
     Dates: start: 20111118, end: 20111118
  23. STELARA [Suspect]
     Indication: PSORIASIS
     Route: 058
     Dates: start: 20110420, end: 20110420
  24. STELARA [Suspect]
     Indication: PSORIASIS
     Route: 058
     Dates: start: 20120612, end: 20120612
  25. ISCOTIN [Suspect]
     Indication: PROPHYLAXIS
     Route: 048
     Dates: start: 20110330, end: 20110729
  26. ISCOTIN [Suspect]
     Indication: PROPHYLAXIS
     Route: 048
     Dates: start: 20110926, end: 20111215
  27. SAHNE [Concomitant]
     Indication: PSORIASIS
     Route: 061
  28. BONALFA [Concomitant]
     Indication: PSORIASIS
     Route: 061
  29. LIDOMEX [Concomitant]
     Indication: PSORIASIS
     Route: 061
  30. TOPSYM [Concomitant]
     Indication: PSORIASIS
     Route: 061

REACTIONS (1)
  - Gastroenteritis [Recovered/Resolved]
